FAERS Safety Report 14258112 (Version 1)
Quarter: 2017Q4

REPORT INFORMATION
  Report Type: Spontaneous
  Country: GB (occurrence: GB)
  Receive Date: 20171207
  Receipt Date: 20171207
  Transmission Date: 20180321
  Serious: Yes (Disabling)
  Sender: FDA-Public Use
  Company Number: GB-EMD SERONO-8206614

PATIENT
  Sex: Female

DRUGS (1)
  1. SAIZEN [Suspect]
     Active Substance: SOMATROPIN
     Indication: GROWTH HORMONE DEFICIENCY
     Dosage: PRE-FILLED AUTOINJECTOR
     Route: 058
     Dates: start: 20061208, end: 20171117

REACTIONS (4)
  - Poor quality sleep [Unknown]
  - Ill-defined disorder [Unknown]
  - Gastric disorder [Unknown]
  - Disability [Unknown]
